FAERS Safety Report 8066413-4 (Version None)
Quarter: 2012Q1

REPORT INFORMATION
  Report Type: 
  Country: None (occurrence: None)
  Receive Date: 20120124
  Receipt Date: 20120124
  Transmission Date: 20120608
  Serious: Yes (Death, Life-Threatening, Hospitalization)
  Sender: FDA-Public Use
  Company Number: None

PATIENT
  Sex: Female
  Weight: 57.6 kg

DRUGS (14)
  1. CYCLOPHOSPHAMIDE [Concomitant]
  2. LORAZEPAM [Concomitant]
     Route: 048
  3. HYDROCORTISONE [Concomitant]
  4. PREDNISONE TAB [Concomitant]
  5. ACETAMINOPHEN [Concomitant]
  6. DIPHENHYDRAMINE HCL [Concomitant]
  7. APREPITANT [Concomitant]
  8. RITUXAMAB [Suspect]
     Indication: B-CELL LYMPHOMA STAGE IV
     Dosage: 375 MG/M2
     Route: 042
     Dates: start: 20100429, end: 20100812
  9. DOXORUBICIN HCL [Concomitant]
  10. MEPERIDINE HCL [Concomitant]
  11. PEGFILGRASTIM [Concomitant]
  12. ZEVALIN [Concomitant]
  13. VINCRISTINE [Concomitant]
  14. PALONOSETRON [Concomitant]

REACTIONS (4)
  - ASTHENIA [None]
  - DIZZINESS [None]
  - PROGRESSIVE MULTIFOCAL LEUKOENCEPHALOPATHY [None]
  - CONFUSIONAL STATE [None]
